FAERS Safety Report 10182343 (Version 1)
Quarter: 2014Q2

REPORT INFORMATION
  Report Type: Spontaneous
  Country: US (occurrence: None)
  Receive Date: 20140516
  Receipt Date: 20140516
  Transmission Date: 20141212
  Serious: Yes (Other)
  Sender: FDA-Public Use
  Company Number: 2337186

PATIENT
  Age: 66 Year
  Sex: Male

DRUGS (5)
  1. VINCRISTINE SULFATE [Suspect]
     Indication: BURKITT^S LYMPHOMA
     Dosage: CYCLICAL
  2. CYCLOSPORINE [Suspect]
     Indication: BURKITT^S LYMPHOMA
     Dosage: CYCLICAL
  3. DOXORUBICIN [Suspect]
     Indication: BURKITT^S LYMPHOMA
     Dosage: CYCLICAL
  4. DEXAMETHASONE [Suspect]
     Indication: BURKITT^S LYMPHOMA
     Dosage: CYCLICAL
  5. RITUXIMAB [Suspect]
     Indication: BURKITT^S LYMPHOMA
     Dosage: CYCLICAL

REACTIONS (10)
  - Herpes zoster [None]
  - Cytomegalovirus chorioretinitis [None]
  - Upper respiratory tract infection [None]
  - Pneumonia [None]
  - Failure to thrive [None]
  - Pyrexia [None]
  - Lymphadenopathy [None]
  - Hodgkin^s disease [None]
  - Epstein-Barr virus associated lymphoma [None]
  - Infection reactivation [None]
